FAERS Safety Report 9628729 (Version 1)
Quarter: 2013Q4

REPORT INFORMATION
  Report Type: Spontaneous
  Country: FI (occurrence: FI)
  Receive Date: 20131017
  Receipt Date: 20131017
  Transmission Date: 20140711
  Serious: Yes (Hospitalization)
  Sender: FDA-Public Use
  Company Number: FI-JNJFOC-20131006142

PATIENT
  Age: 30 Year
  Sex: Male
  Weight: 132.1 kg

DRUGS (3)
  1. REMICADE [Suspect]
     Indication: ANKYLOSING SPONDYLITIS
     Dosage: 500 MG/6 WEEKS
     Route: 042
     Dates: end: 20130723
  2. REMICADE [Suspect]
     Indication: ANKYLOSING SPONDYLITIS
     Dosage: 500 MG/6 WEEKS
     Route: 042
     Dates: start: 20070307, end: 20130610
  3. MOTIFENE [Concomitant]
     Route: 048

REACTIONS (3)
  - Hodgkin^s disease [Unknown]
  - Sleep apnoea syndrome [Recovered/Resolved]
  - Postoperative wound infection [Unknown]
